FAERS Safety Report 9366469 (Version 1)
Quarter: 2013Q2

REPORT INFORMATION
  Report Type: Spontaneous
  Country: US (occurrence: None)
  Receive Date: 20130620
  Receipt Date: 20130620
  Transmission Date: 20140414
  Serious: Yes (Other)
  Sender: FDA-Public Use
  Company Number: IPN-00069

PATIENT
  Age: 13 Year
  Sex: Female

DRUGS (3)
  1. PROPANOLOL [Suspect]
     Indication: AGGRESSION
     Route: 048
  2. RISPERIDONE [Suspect]
     Indication: READING DISORDER
     Route: 048
  3. CARBAMAZEPINE [Concomitant]

REACTIONS (7)
  - Distractibility [None]
  - Aggression [None]
  - Treatment noncompliance [None]
  - Self injurious behaviour [None]
  - Aggression [None]
  - Sleep disorder [None]
  - Abnormal behaviour [None]
